FAERS Safety Report 11134889 (Version 1)
Quarter: 2015Q2

REPORT INFORMATION
  Report Type: Report from Study
  Country: CN (occurrence: CN)
  Receive Date: 20150525
  Receipt Date: 20150525
  Transmission Date: 20150821
  Serious: Yes (Other)
  Sender: FDA-Public Use
  Company Number: CN-ROCHE-1580581

PATIENT
  Sex: Female

DRUGS (1)
  1. CAPECITABINE. [Suspect]
     Active Substance: CAPECITABINE
     Indication: BREAST CANCER METASTATIC
     Dosage: ON DAY 1 TO 14 OF A 3 WEEK CYCLE
     Route: 048

REACTIONS (9)
  - Neutropenia [Unknown]
  - Stomatitis [Unknown]
  - Thrombocytopenia [Unknown]
  - Pyrexia [Unknown]
  - Anaemia [Unknown]
  - Rash [Unknown]
  - Leukopenia [Unknown]
  - Mucosal inflammation [Unknown]
  - Palmar-plantar erythrodysaesthesia syndrome [Unknown]
